FAERS Safety Report 4544218-6 (Version None)
Quarter: 2005Q1

REPORT INFORMATION
  Report Type: 
  Country: None (occurrence: None)
  Receive Date: 20050103
  Receipt Date: 20050103
  Transmission Date: 20050727
  Serious: Yes (Life-Threatening)
  Sender: FDA-Public Use
  Company Number: None

PATIENT
  Age: 9 Year
  Sex: Male
  Weight: 31.7518 kg

DRUGS (1)
  1. ADVAIR     200/50      GLAXOSMITHKLINE [Suspect]
     Indication: ASTHMA
     Dosage: 250/50    BID    RESPIRATOR
     Route: 055
     Dates: start: 20020109, end: 20041227

REACTIONS (4)
  - COUGH [None]
  - ERYTHEMA [None]
  - PHARMACEUTICAL PRODUCT COMPLAINT [None]
  - REACTION TO MEDICAL AGENT PRESERVATIVES [None]
